FAERS Safety Report 6308057-8 (Version None)
Quarter: 2009Q3

REPORT INFORMATION
  Report Type: 
  Country: None (occurrence: None)
  Receive Date: 20090813
  Receipt Date: 20090804
  Transmission Date: 20100115
  Serious: Yes (Hospitalization)
  Sender: FDA-Public Use
  Company Number: B0579706A

PATIENT
  Sex: Male

DRUGS (7)
  1. VALTREX [Suspect]
     Indication: HERPES ZOSTER
     Dosage: 1000MG TWICE PER DAY
     Route: 048
     Dates: start: 20090613, end: 20090614
  2. UNKNOWN DRUG [Concomitant]
     Indication: HERPES ZOSTER
     Dosage: 500MG PER DAY
     Route: 042
     Dates: start: 20090613, end: 20090613
  3. CYANOCOBALAMIN [Concomitant]
     Indication: HERPES ZOSTER
     Dosage: 1500MCG PER DAY
     Route: 048
     Dates: start: 20090613, end: 20090614
  4. ARASENA-A [Concomitant]
     Indication: HERPES ZOSTER
     Route: 061
     Dates: start: 20090613
  5. VOLTAREN [Concomitant]
     Indication: HERPES ZOSTER
     Route: 048
     Dates: start: 20090613, end: 20090615
  6. UNKNOWN DRUG [Concomitant]
     Indication: DIABETES MELLITUS
     Dosage: 2.5MG PER DAY
     Route: 048
     Dates: end: 20090614
  7. MELBIN [Concomitant]
     Indication: DIABETES MELLITUS
     Dosage: 750MG PER DAY
     Route: 048
     Dates: end: 20090614

REACTIONS (8)
  - ANURIA [None]
  - DECREASED APPETITE [None]
  - DYSARTHRIA [None]
  - ENCEPHALOPATHY [None]
  - GAIT DISTURBANCE [None]
  - NAUSEA [None]
  - NEPHROPATHY [None]
  - RENAL IMPAIRMENT [None]
